FAERS Safety Report 9820490 (Version 1)
Quarter: 2014Q1

REPORT INFORMATION
  Report Type: Spontaneous
  Country: US (occurrence: CA)
  Receive Date: 20140116
  Receipt Date: 20140116
  Transmission Date: 20141002
  Serious: Yes (Other)
  Sender: FDA-Public Use
  Company Number: US-MYLANLABS-2014S1000389

PATIENT
  Age: 2 Year
  Sex: 0

DRUGS (1)
  1. EPIPEN [Suspect]

REACTIONS (3)
  - Foreign body [Recovered/Resolved]
  - Needle issue [Recovered/Resolved]
  - Injection site injury [Recovered/Resolved]
